FAERS Safety Report 4555805-3 (Version None)
Quarter: 2005Q1

REPORT INFORMATION
  Report Type: 
  Country: None (occurrence: None)
  Receive Date: 20050112
  Receipt Date: 20040825
  Transmission Date: 20050727
  Serious: Yes (Disabling, Other)
  Sender: FDA-Public Use
  Company Number: 200420372BWH

PATIENT
  Sex: Female

DRUGS (2)
  1. CIPRO [Suspect]
     Dosage: ORAL
     Route: 048
  2. ANTIBIOTICS NOS [Concomitant]

REACTIONS (1)
  - HEPATITIS [None]
